FAERS Safety Report 21938145 (Version 1)
Quarter: 2023Q1

REPORT INFORMATION
  Report Type: Spontaneous
  Country: TW (occurrence: US)
  Receive Date: 20230201
  Receipt Date: 20230201
  Transmission Date: 20230418
  Serious: No
  Sender: FDA-Public Use
  Company Number: TW-INCYTE CORPORATION-2022IN000472

PATIENT

DRUGS (1)
  1. PEMAZYRE [Suspect]
     Active Substance: PEMIGATINIB
     Indication: Cholangiocarcinoma
     Dosage: 13.5 MILLIGRAM (21-DAY CYCLE; 2 WEEKS ON, 1 WEEK OFF)
     Route: 048

REACTIONS (1)
  - Off label use [Unknown]
